FAERS Safety Report 9419436 (Version 1)
Quarter: 2013Q3

REPORT INFORMATION
  Report Type: Spontaneous
  Country: BR (occurrence: BR)
  Receive Date: 20130725
  Receipt Date: 20130725
  Transmission Date: 20140515
  Serious: Yes (Other)
  Sender: FDA-Public Use
  Company Number: BR-PFIZER INC-2013214258

PATIENT
  Age: 67 Year
  Sex: Female

DRUGS (1)
  1. LIPITOR [Suspect]
     Indication: BLOOD CHOLESTEROL
     Dosage: 80 MG (ONE TABLET), 1X/DAY
     Dates: start: 2009

REACTIONS (4)
  - Infarction [Unknown]
  - Ear haemorrhage [Unknown]
  - Ear pruritus [Unknown]
  - Acne [Unknown]
